FAERS Safety Report 6618071-0 (Version None)
Quarter: 2010Q1

REPORT INFORMATION
  Report Type: 
  Country: None (occurrence: None)
  Receive Date: 20100308
  Receipt Date: 20100301
  Transmission Date: 20100710
  Serious: Yes (Hospitalization)
  Sender: FDA-Public Use
  Company Number: GB-ROCHE-526273

PATIENT
  Sex: Male
  Weight: 60 kg

DRUGS (6)
  1. XELODA [Suspect]
     Indication: OESOPHAGEAL ADENOCARCINOMA METASTATIC
     Route: 048
     Dates: start: 20070731, end: 20070917
  2. XELODA [Suspect]
     Route: 048
  3. EPIRUBICIN [Concomitant]
     Indication: OESOPHAGEAL ADENOCARCINOMA METASTATIC
     Dosage: FORM REPORTED AS INFUSION, DOSE: 50 MG/M2
     Route: 042
     Dates: start: 20070731, end: 20070911
  4. CISPLATIN [Concomitant]
     Indication: OESOPHAGEAL ADENOCARCINOMA METASTATIC
     Dosage: DOSE REPORTED: 60 MG/M2
     Route: 042
     Dates: start: 20070731, end: 20070911
  5. METOCLOPRAMIDE [Concomitant]
  6. NOZINAN [Concomitant]
     Indication: ANTIEMETIC SUPPORTIVE CARE
     Route: 048
     Dates: start: 20070821, end: 20070907

REACTIONS (2)
  - ENCEPHALOPATHY [None]
  - NAUSEA [None]
